FAERS Safety Report 7162047-4 (Version None)
Quarter: 2010Q4

REPORT INFORMATION
  Report Type: 
  Country: None (occurrence: None)
  Receive Date: 20101215
  Receipt Date: 20090720
  Transmission Date: 20110411
  Serious: Yes (Death, Other)
  Sender: FDA-Public Use
  Company Number: AU-PFIZER INC-2009243080

PATIENT
  Age: 65 Year

DRUGS (2)
  1. LYRICA [Suspect]
     Route: 048
  2. ORDINE [Interacting]
     Route: 048

REACTIONS (11)
  - ALTERED STATE OF CONSCIOUSNESS [None]
  - ASPIRATION [None]
  - COGNITIVE DISORDER [None]
  - CONSTIPATION [None]
  - DEATH [None]
  - DELUSION [None]
  - DRUG INTERACTION [None]
  - DRY MOUTH [None]
  - MENTAL IMPAIRMENT [None]
  - MYOCARDIAL INFARCTION [None]
  - RENAL FAILURE [None]
